FAERS Safety Report 5757833-9 (Version None)
Quarter: 2008Q2

REPORT INFORMATION
  Report Type: 
  Country: None (occurrence: None)
  Receive Date: 20080603
  Receipt Date: 20080527
  Transmission Date: 20081010
  Serious: Yes (Hospitalization, Other)
  Sender: FDA-Public Use
  Company Number: PHHY2008BR09277

PATIENT
  Sex: Female

DRUGS (1)
  1. CATAFLAM [Suspect]
     Indication: PHARYNGITIS
     Dosage: 15 MG/ ML
     Dates: start: 20080527

REACTIONS (9)
  - ABDOMINAL DISCOMFORT [None]
  - DELIRIUM [None]
  - GASTROINTESTINAL HAEMORRHAGE [None]
  - HAEMATEMESIS [None]
  - PAIN IN EXTREMITY [None]
  - PHARYNGOLARYNGEAL PAIN [None]
  - PYREXIA [None]
  - SENSORY DISTURBANCE [None]
  - WEIGHT DECREASED [None]
